FAERS Safety Report 20755738 (Version 1)
Quarter: 2022Q2

REPORT INFORMATION
  Report Type: Spontaneous
  Country: US (occurrence: US)
  Receive Date: 20220427
  Receipt Date: 20220427
  Transmission Date: 20220720
  Serious: No
  Sender: FDA-Public Use
  Company Number: US-ALLERGAN-2114507US

PATIENT

DRUGS (1)
  1. ATELVIA [Suspect]
     Active Substance: RISEDRONATE SODIUM
     Indication: Bone disorder

REACTIONS (5)
  - Eye pain [Unknown]
  - Photopsia [Unknown]
  - Visual impairment [Unknown]
  - Scintillating scotoma [Unknown]
  - Macular degeneration [Unknown]
